FAERS Safety Report 6760715-7 (Version None)
Quarter: 2010Q2

REPORT INFORMATION
  Report Type: 
  Country: None (occurrence: None)
  Receive Date: 20100607
  Receipt Date: 20100607
  Transmission Date: 20101027
  Serious: Yes (Hospitalization)
  Sender: FDA-Public Use
  Company Number: None

PATIENT
  Age: 38 Year
  Sex: Female
  Weight: 77.1115 kg

DRUGS (2)
  1. LORAZEPAM [Suspect]
     Indication: ANXIETY DISORDER
     Dosage: 1 TABLET 4 TIMES DAILY PO
     Route: 048
     Dates: start: 20100510, end: 20100602
  2. LORAZEPAM [Suspect]
     Indication: PANIC DISORDER
     Dosage: 1 TABLET 4 TIMES DAILY PO
     Route: 048
     Dates: start: 20100510, end: 20100602

REACTIONS (5)
  - ANXIETY [None]
  - DRUG INEFFECTIVE [None]
  - DYSPNOEA [None]
  - PRODUCT SUBSTITUTION ISSUE [None]
  - TACHYCARDIA [None]
